FAERS Safety Report 18586564 (Version 1)
Quarter: 2020Q4

REPORT INFORMATION
  Report Type: Other
  Country: US (occurrence: US)
  Receive Date: 20201207
  Receipt Date: 20201207
  Transmission Date: 20210114
  Serious: No
  Sender: FDA-Public Use
  Company Number: US-ROCHE-2725666

PATIENT
  Age: 56 Year
  Sex: Female
  Weight: 68.1 kg

DRUGS (13)
  1. MYRBETRIQ [Concomitant]
     Active Substance: MIRABEGRON
  2. VITAMIN C [Concomitant]
     Active Substance: ASCORBIC ACID
  3. CIPRO [Concomitant]
     Active Substance: CIPROFLOXACIN HYDROCHLORIDE
     Dosage: 1 TABLET TWICE A DAY
     Route: 048
  4. OCREVUS [Suspect]
     Active Substance: OCRELIZUMAB
     Indication: RELAPSING MULTIPLE SCLEROSIS
     Dosage: PRESCRIBED WITH 300 MG DAY 1 AND DAY 15 THEN 600 MG EVERY 6 MONTHS
     Route: 065
     Dates: start: 20200303
  5. SERTRALINE HCL [Concomitant]
     Active Substance: SERTRALINE HYDROCHLORIDE
  6. CRANBERRY. [Concomitant]
     Active Substance: CRANBERRY
     Dosage: TWICE A DAY
  7. CYMBALTA [Concomitant]
     Active Substance: DULOXETINE HYDROCHLORIDE
     Dosage: 60 MG CAPSULE DELAYED RELEASE
     Route: 048
  8. HYDROXYZINE HCL [Concomitant]
     Active Substance: HYDROXYZINE HYDROCHLORIDE
     Route: 048
  9. LEVOTHYROXINE SODIUM. [Concomitant]
     Active Substance: LEVOTHYROXINE SODIUM
     Route: 048
  10. IRON [Concomitant]
     Active Substance: IRON
  11. TRAZODONE HYDROCHLORIDE. [Concomitant]
     Active Substance: TRAZODONE HYDROCHLORIDE
     Dosage: 1 TABLET AT BEDTIME AS NEEDED ONCE A DAY
     Route: 048
  12. BACLOFEN. [Concomitant]
     Active Substance: BACLOFEN
     Dosage: 1 TABLET WITH FOOD OR MILD ORALLY FOUR TIMES A DAY
     Route: 048
  13. MIRABEGRON [Concomitant]
     Active Substance: MIRABEGRON

REACTIONS (3)
  - SARS-CoV-2 test positive [Unknown]
  - Fatigue [Not Recovered/Not Resolved]
  - Nausea [Not Recovered/Not Resolved]

NARRATIVE: CASE EVENT DATE: 20201126
